FAERS Safety Report 7156491-9 (Version None)
Quarter: 2010Q4

REPORT INFORMATION
  Report Type: 
  Country: None (occurrence: None)
  Receive Date: 20101214
  Receipt Date: 20091120
  Transmission Date: 20110411
  Serious: No
  Sender: FDA-Public Use
  Company Number: US-ASTRAZENECA-2009SE27845

PATIENT
  Age: 62 Year
  Sex: Female
  Weight: 47.6 kg

DRUGS (4)
  1. CRESTOR [Suspect]
     Route: 048
     Dates: start: 20091001
  2. FORTEO [Concomitant]
     Indication: OSTEOPOROSIS
  3. ALEVE (CAPLET) [Concomitant]
  4. ASPIRIN [Concomitant]

REACTIONS (3)
  - INSOMNIA [None]
  - MUSCLE SPASMS [None]
  - MYALGIA [None]
